FAERS Safety Report 25742064 (Version 2)
Quarter: 2025Q4

REPORT INFORMATION
  Report Type: Spontaneous
  Country: CA (occurrence: CA)
  Receive Date: 20250829
  Receipt Date: 20251020
  Transmission Date: 20260119
  Serious: Yes (Other)
  Sender: PFIZER
  Company Number: CA-PFIZER INC-202500170341

PATIENT
  Age: 34 Year
  Sex: Male

DRUGS (2)
  1. ABRILADA [Suspect]
     Active Substance: ADALIMUMAB-AFZB
     Indication: Crohn^s disease
     Dosage: 40 MG,EVERY 2 WEEKS(WEEK 0= 160MGWEEK 2 = 80MG)
     Route: 058
     Dates: start: 20250327
  2. ABRILADA [Suspect]
     Active Substance: ADALIMUMAB-AFZB
     Dosage: 40 MG,EVERY 2 WEEKS
     Dates: start: 2025

REACTIONS (3)
  - Hernia [Unknown]
  - Scar [Unknown]
  - Neuralgia [Unknown]

NARRATIVE: CASE EVENT DATE: 20250101
